FAERS Safety Report 4628188-8 (Version None)
Quarter: 2005Q2

REPORT INFORMATION
  Report Type: 
  Country: None (occurrence: None)
  Receive Date: 20050401
  Receipt Date: 20050317
  Transmission Date: 20051028
  Serious: Yes (Hospitalization)
  Sender: FDA-Public Use
  Company Number: GBR-2005-0001550

PATIENT
  Age: 60 Year
  Sex: Female

DRUGS (8)
  1. OXYCONTIN [Suspect]
     Indication: CANCER PAIN
     Dosage: 10 MG, BID, ORAL
     Route: 048
     Dates: start: 20050208, end: 20050210
  2. OXYNORM CAPSULES           IR CAPSULE [Suspect]
  3. PARACETAMOL [Concomitant]
  4. GABAPENTIN [Concomitant]
  5. AMITRIPTYLINE HCL [Concomitant]
  6. CELEBREX [Concomitant]
  7. LANSOPRAZOLE [Concomitant]
  8. TEMAZEPAM [Concomitant]

REACTIONS (5)
  - BRONCHOSPASM [None]
  - GENERAL PHYSICAL HEALTH DETERIORATION [None]
  - HAEMOPHILUS INFECTION [None]
  - LOWER RESPIRATORY TRACT INFECTION [None]
  - SPUTUM CULTURE POSITIVE [None]
